FAERS Safety Report 6758584-4 (Version None)
Quarter: 2010Q2

REPORT INFORMATION
  Report Type: 
  Country: None (occurrence: None)
  Receive Date: 20100607
  Receipt Date: 20100531
  Transmission Date: 20101027
  Serious: Yes (Death)
  Sender: FDA-Public Use
  Company Number: CH-ROCHE-706795

PATIENT
  Sex: Male
  Weight: 85 kg

DRUGS (3)
  1. BEVACIZUMAB [Suspect]
     Dosage: FORM: INFUSION
     Route: 042
     Dates: start: 20100510
  2. CAPECITABINE [Suspect]
     Route: 048
     Dates: start: 20100510
  3. IRINOTECAN [Suspect]
     Dosage: FORM: INFUSION
     Route: 042
     Dates: start: 20100510

REACTIONS (1)
  - UPPER GASTROINTESTINAL HAEMORRHAGE [None]
